FAERS Safety Report 21600767 (Version 2)
Quarter: 2022Q4

REPORT INFORMATION
  Report Type: Spontaneous
  Country: IT (occurrence: IT)
  Receive Date: 20221116
  Receipt Date: 20221219
  Transmission Date: 20230113
  Serious: Yes (Hospitalization)
  Sender: FDA-Public Use
  Company Number: IT-MINISAL02-890723

PATIENT
  Age: 78 Year
  Sex: Female

DRUGS (6)
  1. CIPROFLOXACIN [Suspect]
     Active Substance: CIPROFLOXACIN
     Indication: Pyrexia
     Dosage: 500 MILLIGRAM, BID
     Route: 048
     Dates: start: 20221008, end: 20221014
  2. ALLOPURINOL [Suspect]
     Active Substance: ALLOPURINOL
     Indication: Hyperuricaemia
     Dosage: UNK
     Route: 048
     Dates: start: 20220915, end: 20221009
  3. IRBESARTAN + IDROCLOROTIAZIDE [Concomitant]
     Indication: Product used for unknown indication
     Dosage: 12.5 MILLIGRAM, UNK
     Route: 048
  4. NEBIVOLOL [Concomitant]
     Active Substance: NEBIVOLOL
     Indication: Hypertension
     Dosage: 5 MILLIGRAM, QD
     Route: 048
  5. IRBESARTAN + IDROCLOROTIAZIDE [Concomitant]
     Indication: Hypertension
     Dosage: 150 MILLIGRAM, QD, THE PATIENT TAKES THE IRBESARTAN/HYDROCHLOROTHIAZIDE 150/12.5 MG COMBINATION
     Route: 048
  6. SIMVASTATIN [Concomitant]
     Active Substance: SIMVASTATIN
     Indication: Product used for unknown indication
     Dosage: 20 MILLIGRAM, UNK
     Route: 048

REACTIONS (6)
  - Pyrexia [Recovered/Resolved]
  - Drug reaction with eosinophilia and systemic symptoms [Recovering/Resolving]
  - Eosinophilia [Not Recovered/Not Resolved]
  - Hypertransaminasaemia [Not Recovered/Not Resolved]
  - Rash macular [Recovering/Resolving]
  - Pruritus [Recovering/Resolving]

NARRATIVE: CASE EVENT DATE: 20221001
